FAERS Safety Report 4785461-0 (Version None)
Quarter: 2005Q3

REPORT INFORMATION
  Report Type: 
  Country: None (occurrence: None)
  Receive Date: 20050929
  Receipt Date: 20050915
  Transmission Date: 20060218
  Serious: Yes (Hospitalization, Other)
  Sender: FDA-Public Use
  Company Number: 2005P1000436

PATIENT
  Age: 56 Year
  Sex: Male
  Weight: 70 kg

DRUGS (7)
  1. RETEVASE [Suspect]
     Indication: ACUTE MYOCARDIAL INFARCTION
     Dosage: 5 IU; X2; IV
     Route: 042
     Dates: start: 20050324, end: 20050324
  2. ABCIXIMAB (ABCIXIMAB) [Suspect]
     Indication: ACUTE MYOCARDIAL INFARCTION
     Dosage: 3.3 ML; QH; IV
     Route: 042
     Dates: start: 20050324, end: 20050324
  3. ASPIRIN [Concomitant]
  4. CLOPIDOGREL [Concomitant]
  5. ATORVASTATIN [Concomitant]
  6. PERINDOPRIL [Concomitant]
  7. ATENOLOL [Concomitant]

REACTIONS (8)
  - ANGINA PECTORIS [None]
  - DYSPNOEA [None]
  - ELECTROCARDIOGRAM POOR R-WAVE PROGRESSION [None]
  - ELECTROCARDIOGRAM ST SEGMENT DEPRESSION [None]
  - ELECTROCARDIOGRAM T WAVE ABNORMAL [None]
  - GASTROINTESTINAL HAEMORRHAGE [None]
  - HAEMOGLOBIN DECREASED [None]
  - RECTAL CANCER [None]
